FAERS Safety Report 8798671 (Version 2)
Quarter: 2015Q2

REPORT INFORMATION
  Report Type: Report from Study
  Country: US (occurrence: US)
  Receive Date: 20120917
  Receipt Date: 20150413
  Transmission Date: 20150821
  Serious: Yes (Death)
  Sender: FDA-Public Use
  Company Number: US-ROCHE-1127978

PATIENT
  Sex: Male

DRUGS (27)
  1. LEUCOVORIN CALCIUM. [Concomitant]
     Active Substance: LEUCOVORIN CALCIUM
     Route: 042
  2. 5-FLUOROURACIL [Concomitant]
     Active Substance: FLUOROURACIL
  3. GEMFIBROZIL. [Concomitant]
     Active Substance: GEMFIBROZIL
     Route: 065
  4. HYDROCHLOROTHIAZIDE. [Concomitant]
     Active Substance: HYDROCHLOROTHIAZIDE
     Route: 048
  5. CETUXIMAB [Concomitant]
     Active Substance: CETUXIMAB
  6. LEUCOVORIN [Concomitant]
     Active Substance: LEUCOVORIN
  7. ACTOS [Concomitant]
     Active Substance: PIOGLITAZONE HYDROCHLORIDE
     Route: 065
  8. EMEND [Concomitant]
     Active Substance: APREPITANT
  9. GAS-X [Concomitant]
     Active Substance: DIMETHICONE
  10. ZOFRAN [Concomitant]
     Active Substance: ONDANSETRON HYDROCHLORIDE
  11. AVASTIN [Suspect]
     Active Substance: BEVACIZUMAB
     Indication: RECTOSIGMOID CANCER
     Route: 042
  12. DEXAMETHASONE. [Concomitant]
     Active Substance: DEXAMETHASONE
     Route: 042
  13. FOLINIC ACID [Concomitant]
     Active Substance: LEUCOVORIN
  14. VICODIN [Concomitant]
     Active Substance: ACETAMINOPHEN\HYDROCODONE BITARTRATE
  15. CARVEDILOL. [Concomitant]
     Active Substance: CARVEDILOL
     Route: 048
  16. IRINOTECAN [Concomitant]
     Active Substance: IRINOTECAN
     Route: 042
  17. AMLODIPINE [Concomitant]
     Active Substance: AMLODIPINE BESYLATE
     Route: 048
  18. AMOXICILLIN. [Concomitant]
     Active Substance: AMOXICILLIN
     Route: 048
  19. INSULIN [Concomitant]
     Active Substance: INSULIN NOS
     Route: 065
  20. DARVON (UNITED STATES) [Concomitant]
     Route: 048
  21. ONDANSETRON [Concomitant]
     Active Substance: ONDANSETRON
     Route: 042
  22. OXALIPLATIN. [Concomitant]
     Active Substance: OXALIPLATIN
  23. ACETAMINOPHEN. [Concomitant]
     Active Substance: ACETAMINOPHEN
     Indication: PAIN
     Route: 065
  24. AVASTIN [Suspect]
     Active Substance: BEVACIZUMAB
     Indication: METASTASES TO LIVER
  25. CODEINE [Concomitant]
     Active Substance: CODEINE
     Indication: PAIN
     Route: 065
  26. IMODIUM [Concomitant]
     Active Substance: LOPERAMIDE HYDROCHLORIDE
  27. COMPAZINE [Concomitant]
     Active Substance: PROCHLORPERAZINE MALEATE

REACTIONS (19)
  - Temperature intolerance [Unknown]
  - Rash [Unknown]
  - Skin fissures [Unknown]
  - Vomiting [Unknown]
  - Peripheral swelling [Unknown]
  - Nausea [Unknown]
  - Rectal haemorrhage [Unknown]
  - Pain [Unknown]
  - Abscess jaw [Unknown]
  - Paraesthesia [Unknown]
  - Neuropathy peripheral [Unknown]
  - Death [Fatal]
  - Mucosal inflammation [Unknown]
  - Disease progression [Unknown]
  - Hyperglycaemia [Unknown]
  - Pruritus [Unknown]
  - Asthenia [Unknown]
  - Pain in jaw [Unknown]
  - Fatigue [Unknown]
